FAERS Safety Report 24429342 (Version 4)
Quarter: 2024Q4

REPORT INFORMATION
  Report Type: Spontaneous
  Country: US (occurrence: US)
  Receive Date: 20241011
  Receipt Date: 20241230
  Transmission Date: 20250114
  Serious: Yes (Hospitalization, Other)
  Sender: BRISTOL-MYERS SQUIBB COMPANY
  Company Number: US-BRISTOL-MYERS SQUIBB COMPANY-2024-154818

PATIENT
  Age: 79 Year
  Sex: Female

DRUGS (3)
  1. LENALIDOMIDE [Suspect]
     Active Substance: LENALIDOMIDE
     Indication: Plasma cell myeloma
     Dosage: TAKE 1 CAPSULE BY MOUTH EVERY DAY FOR 21 DAYS ON AND 7 DAYS OFF
     Route: 048
     Dates: start: 20240924, end: 20241003
  2. LENALIDOMIDE [Suspect]
     Active Substance: LENALIDOMIDE
     Dosage: TAKE 1 CAPSULE BY MOUTH EVERY DAY FOR 21 DAYS ON AND 7 DAYS OFF
     Route: 048
  3. LENALIDOMIDE [Suspect]
     Active Substance: LENALIDOMIDE
     Dosage: TAKE 1 CAPSULE BY MOUTH EVERY DAY FOR 21 DAYS ON AND 7 DAYS OFF
     Route: 048

REACTIONS (12)
  - Constipation [Not Recovered/Not Resolved]
  - Disturbance in attention [Unknown]
  - Depression [Unknown]
  - Fall [Unknown]
  - Spinal fracture [Unknown]
  - Nerve injury [Unknown]
  - Hip fracture [Recovered/Resolved]
  - Hypotension [Recovered/Resolved with Sequelae]
  - Peripheral swelling [Recovering/Resolving]
  - Fatigue [Unknown]
  - Blood potassium abnormal [Unknown]
  - Rash [Unknown]

NARRATIVE: CASE EVENT DATE: 20240930
